FAERS Safety Report 17399838 (Version 2)
Quarter: 2020Q2

REPORT INFORMATION
  Report Type: Spontaneous
  Country: GB (occurrence: GB)
  Receive Date: 20200211
  Receipt Date: 20200403
  Transmission Date: 20200713
  Serious: Yes (Death)
  Sender: FDA-Public Use
  Company Number: GB-TEVA-2020-GB-1184112

PATIENT
  Age: 14 Year
  Sex: Male
  Weight: 45 kg

DRUGS (4)
  1. SALBUTAMOL SULFATE [Concomitant]
     Active Substance: ALBUTEROL SULFATE
     Indication: ASTHMA
     Dosage: 2 DF
     Route: 065
  2. VENTOLIN [Concomitant]
     Active Substance: ALBUTEROL SULFATE
  3. CLENIL MODULITE [Concomitant]
     Active Substance: BECLOMETHASONE DIPROPIONATE
     Indication: ASTHMA
     Dosage: 1-2 PUFF TWICE A DAY.
     Route: 055
  4. MONTELUKAST [Suspect]
     Active Substance: MONTELUKAST SODIUM
     Indication: ASTHMA
     Dosage: 5 MILLIGRAM DAILY; 5 MG, AT NIGHT
     Route: 048
     Dates: start: 20150315, end: 201802

REACTIONS (9)
  - Completed suicide [Fatal]
  - Sleep disorder [Fatal]
  - Suicidal ideation [Fatal]
  - Anger [Fatal]
  - Intentional self-injury [Fatal]
  - Anxiety [Fatal]
  - Hallucination, auditory [Fatal]
  - Agitation [Fatal]
  - Paranoia [Fatal]

NARRATIVE: CASE EVENT DATE: 20170101
